FAERS Safety Report 6636971-2 (Version None)
Quarter: 2010Q1

REPORT INFORMATION
  Report Type: 
  Country: None (occurrence: None)
  Receive Date: 20100316
  Receipt Date: 20100305
  Transmission Date: 20100710
  Serious: Yes (Death, Other)
  Sender: FDA-Public Use
  Company Number: US-MILLENNIUM PHARMACEUTICALS, INC.-2010-01555

PATIENT
  Age: 58 Year
  Sex: Male

DRUGS (4)
  1. VELCADE [Suspect]
     Indication: MULTIPLE MYELOMA
  2. THALIDOMIDE [Suspect]
     Indication: MULTIPLE MYELOMA
  3. DEXAMETHASONE [Suspect]
     Indication: MULTIPLE MYELOMA
  4. DOXIL                              /00330902/ [Suspect]
     Indication: MULTIPLE MYELOMA

REACTIONS (3)
  - DISEASE PROGRESSION [None]
  - LUNG INFILTRATION MALIGNANT [None]
  - METASTASES TO SKIN [None]
